FAERS Safety Report 13897558 (Version 4)
Quarter: 2018Q2

REPORT INFORMATION
  Report Type: Report from Study
  Country: IT (occurrence: IT)
  Receive Date: 20170823
  Receipt Date: 20180417
  Transmission Date: 20180711
  Serious: Yes (Other)
  Sender: FDA-Public Use
  Company Number: IT-ASTELLAS-2017US033445

PATIENT
  Age: 72 Year
  Sex: Male

DRUGS (5)
  1. DECAPEPTYL                         /00486501/ [Concomitant]
     Active Substance: GONADORELIN
     Indication: PROSTATE CANCER
     Dosage: 11.25 MG/2 ML POWDER, UNKNOWN FREQ.
     Route: 030
     Dates: start: 20130303
  2. EUTIROX [Concomitant]
     Active Substance: LEVOTHYROXINE SODIUM
     Dosage: UNK UNK, UNKNOWN FREQ (CHANGED DOSE)
     Route: 048
  3. ENZALUTAMIDE [Suspect]
     Active Substance: ENZALUTAMIDE
     Indication: HORMONE-REFRACTORY PROSTATE CANCER
     Route: 048
     Dates: start: 20170203
  4. EUTIROX [Concomitant]
     Active Substance: LEVOTHYROXINE SODIUM
     Indication: PRODUCT USED FOR UNKNOWN INDICATION
     Dosage: UNK, UNKNOWN FREQ.
     Route: 048
  5. TRIPTORELIN [Concomitant]
     Active Substance: TRIPTORELIN
     Indication: PROSTATE CANCER
     Dosage: INJECTABLE SUSPENSION, UNKNOWN FREQ.
     Route: 030
     Dates: start: 20130303

REACTIONS (1)
  - Hypothyroidism [Recovering/Resolving]

NARRATIVE: CASE EVENT DATE: 20170721
